FAERS Safety Report 20710505 (Version 2)
Quarter: 2022Q2

REPORT INFORMATION
  Report Type: Spontaneous
  Country: ES (occurrence: ES)
  Receive Date: 20220414
  Receipt Date: 20220509
  Transmission Date: 20220720
  Serious: Yes (Death, Hospitalization, Other)
  Sender: FDA-Public Use
  Company Number: ES-NOVARTISPH-NVSC2022ES077122

PATIENT
  Age: 32 Year
  Sex: Male

DRUGS (7)
  1. PIPERACILLIN SODIUM\TAZOBACTAM SODIUM [Suspect]
     Active Substance: PIPERACILLIN SODIUM\TAZOBACTAM SODIUM
     Indication: Febrile neutropenia
     Dosage: UNK
     Route: 065
  2. FLUCONAZOLE [Suspect]
     Active Substance: FLUCONAZOLE
     Indication: Fungal infection
     Dosage: UNK
     Route: 065
  3. FILGRASTIM [Suspect]
     Active Substance: FILGRASTIM
     Indication: Febrile neutropenia
     Dosage: UNK
     Route: 065
  4. FILGRASTIM [Suspect]
     Active Substance: FILGRASTIM
     Indication: Prophylaxis
  5. CISPLATIN [Suspect]
     Active Substance: CISPLATIN
     Indication: Squamous cell carcinoma
     Dosage: 100 MG/M2
     Route: 065
  6. CISPLATIN [Suspect]
     Active Substance: CISPLATIN
     Indication: Tonsil cancer
  7. DEFIBROTIDE [Suspect]
     Active Substance: DEFIBROTIDE (BOVINE)
     Indication: Venoocclusive liver disease
     Dosage: 400 MG, Q6H
     Route: 065

REACTIONS (10)
  - Thrombocytopenia [Fatal]
  - Intestinal obstruction [Fatal]
  - Enteritis [Fatal]
  - Mucosal inflammation [Fatal]
  - Gene mutation [Fatal]
  - Pneumonia [Fatal]
  - Hypotension [Fatal]
  - Renal impairment [Fatal]
  - Death [Fatal]
  - Drug ineffective [Fatal]
